FAERS Safety Report 10381159 (Version 1)
Quarter: 2014Q3

REPORT INFORMATION
  Report Type: Spontaneous
  Country: US (occurrence: None)
  Receive Date: 20140812
  Receipt Date: 20140812
  Transmission Date: 20150326
  Serious: No
  Sender: FDA-Public Use
  Company Number: None

PATIENT
  Age: 64 Year
  Sex: Female

DRUGS (1)
  1. HUMIRA [Suspect]
     Active Substance: ADALIMUMAB
     Indication: RHEUMATOID ARTHRITIS
     Route: 058
     Dates: start: 20140728

REACTIONS (5)
  - Flushing [None]
  - Halo vision [None]
  - Hair disorder [None]
  - Cold sweat [None]
  - Headache [None]

NARRATIVE: CASE EVENT DATE: 20140728
